FAERS Safety Report 25673230 (Version 1)
Quarter: 2025Q3

REPORT INFORMATION
  Report Type: Spontaneous
  Country: JP (occurrence: JP)
  Receive Date: 20250813
  Receipt Date: 20250813
  Transmission Date: 20251021
  Serious: Yes (Hospitalization, Other)
  Sender: MERCK SHARP & DOHME LLC
  Company Number: JP-EMA-20160628-pvevhp-151342136

PATIENT
  Age: 56 Year
  Sex: Male
  Weight: 59 kg

DRUGS (53)
  1. CASPOFUNGIN ACETATE [Suspect]
     Active Substance: CASPOFUNGIN ACETATE
     Indication: Aspergilloma
     Dosage: 50 MG, 1 IN 1 D
     Route: 042
     Dates: start: 20141009, end: 20141104
  2. VINDESINE SULFATE [Suspect]
     Active Substance: VINDESINE SULFATE
     Indication: Adult T-cell lymphoma/leukaemia
     Dates: start: 20150217, end: 20150217
  3. VINDESINE SULFATE [Suspect]
     Active Substance: VINDESINE SULFATE
     Indication: Adult T-cell lymphoma/leukaemia
     Dates: start: 20150129, end: 20150129
  4. VINDESINE SULFATE [Suspect]
     Active Substance: VINDESINE SULFATE
     Indication: Adult T-cell lymphoma/leukaemia
     Dates: start: 20150318, end: 20150320
  5. CARBOPLATIN [Suspect]
     Active Substance: CARBOPLATIN
     Indication: Adult T-cell lymphoma/leukaemia
     Dates: start: 20150217, end: 20150217
  6. CARBOPLATIN [Suspect]
     Active Substance: CARBOPLATIN
     Indication: Adult T-cell lymphoma/leukaemia
     Dates: start: 20150129, end: 20150129
  7. CARBOPLATIN [Suspect]
     Active Substance: CARBOPLATIN
     Indication: Adult T-cell lymphoma/leukaemia
     Dates: start: 20150318, end: 20150320
  8. FILGRASTIM [Suspect]
     Active Substance: FILGRASTIM
     Indication: Neutropenia
     Dosage: 300 MUG, 1 IN 1 D
     Route: 042
     Dates: start: 20150304, end: 20150306
  9. FILGRASTIM [Suspect]
     Active Substance: FILGRASTIM
     Indication: Neutropenia
     Dosage: 300 MUG, 1 IN 1 D
     Route: 042
     Dates: start: 20150308, end: 20150308
  10. FILGRASTIM [Suspect]
     Active Substance: FILGRASTIM
     Indication: Neutropenia
     Dosage: 300 MUG, 1 IN 1 D
     Route: 042
     Dates: start: 20150312, end: 20150312
  11. FILGRASTIM [Suspect]
     Active Substance: FILGRASTIM
     Indication: Neutropenia
     Dosage: 300 MUG, 1 IN 1 D
     Route: 042
     Dates: start: 20150126, end: 20150126
  12. FILGRASTIM [Suspect]
     Active Substance: FILGRASTIM
     Indication: Neutropenia
     Dosage: 300 MUG, 1 IN 1 D
     Route: 042
     Dates: start: 20150130, end: 20150208
  13. FILGRASTIM [Suspect]
     Active Substance: FILGRASTIM
     Indication: Neutropenia
     Dosage: 300 MUG, 1 IN 1 D
     Route: 042
     Dates: start: 20150310, end: 20150310
  14. FILGRASTIM [Suspect]
     Active Substance: FILGRASTIM
     Indication: Neutropenia
     Dosage: 300 MUG, 1 IN 1 D
     Route: 042
     Dates: start: 20150223, end: 20150301
  15. FILGRASTIM [Suspect]
     Active Substance: FILGRASTIM
     Indication: Neutropenia
     Dosage: 300 MUG, 1 IN 1 D
     Route: 042
     Dates: start: 20150218, end: 20150220
  16. FILGRASTIM [Suspect]
     Active Substance: FILGRASTIM
     Indication: Neutropenia
     Dosage: 300 MUG, 1 IN 1 D
     Route: 042
     Dates: start: 20150211, end: 20150211
  17. FILGRASTIM [Suspect]
     Active Substance: FILGRASTIM
     Indication: Neutropenia
     Dosage: 300 MUG, 1 IN 1 D
     Route: 042
     Dates: start: 20150314, end: 20150314
  18. FILGRASTIM [Suspect]
     Active Substance: FILGRASTIM
     Indication: Neutropenia
     Dosage: 300 MUG, 1 IN 1 D
     Route: 042
     Dates: start: 20150128, end: 20150128
  19. FILGRASTIM [Suspect]
     Active Substance: FILGRASTIM
     Indication: Neutropenia
     Dosage: 300 MUG, 1 IN 1 D
     Route: 042
     Dates: start: 20150316, end: 20150316
  20. ELCATONIN [Concomitant]
     Active Substance: ELCATONIN
     Route: 051
  21. FUROSEMIDE [Concomitant]
     Active Substance: FUROSEMIDE
  22. CYCLOPHOSPHAMIDE [Suspect]
     Active Substance: CYCLOPHOSPHAMIDE
     Indication: Adult T-cell lymphoma/leukaemia
     Dates: start: 20150217, end: 20150217
  23. CYCLOPHOSPHAMIDE [Suspect]
     Active Substance: CYCLOPHOSPHAMIDE
     Indication: Adult T-cell lymphoma/leukaemia
     Dates: start: 20150129, end: 20150129
  24. CYCLOPHOSPHAMIDE [Suspect]
     Active Substance: CYCLOPHOSPHAMIDE
     Indication: Adult T-cell lymphoma/leukaemia
     Dates: start: 20150318, end: 20150320
  25. RANIMUSTINE [Suspect]
     Active Substance: RANIMUSTINE
     Indication: Adult T-cell lymphoma/leukaemia
     Route: 051
     Dates: start: 20150217, end: 20150217
  26. RANIMUSTINE [Suspect]
     Active Substance: RANIMUSTINE
     Indication: Adult T-cell lymphoma/leukaemia
     Route: 051
     Dates: start: 20150318, end: 20150320
  27. RANIMUSTINE [Suspect]
     Active Substance: RANIMUSTINE
     Indication: Adult T-cell lymphoma/leukaemia
     Route: 051
     Dates: start: 20150129, end: 20150129
  28. RANIMUSTINE [Suspect]
     Active Substance: RANIMUSTINE
     Indication: Adult T-cell lymphoma/leukaemia
     Route: 051
     Dates: end: 20150331
  29. DOXORUBICIN HYDROCHLORIDE [Suspect]
     Active Substance: DOXORUBICIN HYDROCHLORIDE
     Indication: Adult T-cell lymphoma/leukaemia
     Route: 051
     Dates: end: 20150331
  30. DOXORUBICIN HYDROCHLORIDE [Suspect]
     Active Substance: DOXORUBICIN HYDROCHLORIDE
     Indication: Adult T-cell lymphoma/leukaemia
     Route: 051
     Dates: start: 20150217, end: 20150217
  31. DOXORUBICIN HYDROCHLORIDE [Suspect]
     Active Substance: DOXORUBICIN HYDROCHLORIDE
     Indication: Adult T-cell lymphoma/leukaemia
     Route: 051
     Dates: start: 20150129, end: 20150129
  32. DOXORUBICIN HYDROCHLORIDE [Suspect]
     Active Substance: DOXORUBICIN HYDROCHLORIDE
     Indication: Adult T-cell lymphoma/leukaemia
     Route: 051
     Dates: start: 20150318, end: 20150320
  33. PREDNISOLONE [Suspect]
     Active Substance: PREDNISOLONE
     Indication: Adult T-cell lymphoma/leukaemia
     Route: 048
     Dates: start: 20150129, end: 20150129
  34. PREDNISOLONE [Suspect]
     Active Substance: PREDNISOLONE
     Indication: Adult T-cell lymphoma/leukaemia
     Route: 048
     Dates: start: 20150217, end: 20150217
  35. PREDNISOLONE [Suspect]
     Active Substance: PREDNISOLONE
     Indication: Adult T-cell lymphoma/leukaemia
     Route: 048
     Dates: start: 20150318, end: 20150320
  36. PREDNISOLONE [Suspect]
     Active Substance: PREDNISOLONE
     Indication: Adult T-cell lymphoma/leukaemia
     Route: 048
     Dates: end: 20150331
  37. POTASSIUM CHLORIDE [Concomitant]
     Active Substance: POTASSIUM CHLORIDE
     Route: 051
  38. SODIUM BICARBONATE [Concomitant]
     Active Substance: SODIUM BICARBONATE
     Route: 048
  39. ALOXI [Concomitant]
     Active Substance: PALONOSETRON HYDROCHLORIDE
     Route: 051
  40. POTASSIUM ASPARTATE [Concomitant]
     Active Substance: POTASSIUM ASPARTATE
     Route: 048
  41. CALCIUM GLUCONATE [Concomitant]
     Active Substance: CALCIUM GLUCONATE
  42. ETOPOSIDE [Suspect]
     Active Substance: ETOPOSIDE
     Indication: Adult T-cell lymphoma/leukaemia
     Dates: start: 20150217, end: 20150217
  43. ETOPOSIDE [Suspect]
     Active Substance: ETOPOSIDE
     Indication: Adult T-cell lymphoma/leukaemia
     Dates: start: 20150318, end: 20150320
  44. ETOPOSIDE [Suspect]
     Active Substance: ETOPOSIDE
     Indication: Adult T-cell lymphoma/leukaemia
     Dates: start: 20150129, end: 20150129
  45. FOSCARNET SODIUM [Suspect]
     Active Substance: FOSCARNET SODIUM
     Indication: Cytomegalovirus infection
     Dates: start: 20150314, end: 20150421
  46. CYTARABINE [Concomitant]
     Active Substance: CYTARABINE
     Route: 051
  47. GANCICLOVIR SODIUM [Suspect]
     Active Substance: GANCICLOVIR SODIUM
     Indication: Cytomegalovirus chorioretinitis
     Route: 042
     Dates: start: 20150218, end: 20150224
  48. GANCICLOVIR SODIUM [Suspect]
     Active Substance: GANCICLOVIR SODIUM
     Indication: Cytomegalovirus chorioretinitis
     Dosage: 200 MG, 2 IN 1 D
     Route: 042
     Dates: start: 20150224, end: 20150313
  49. EMEND [Concomitant]
     Active Substance: APREPITANT
     Route: 048
  50. LENOGRASTIM [Concomitant]
     Active Substance: LENOGRASTIM
  51. PRE DOPA [Concomitant]
  52. PRIMPERAN [Concomitant]
     Active Substance: METOCLOPRAMIDE HYDROCHLORIDE
     Route: 051
  53. RASBURICASE [Concomitant]
     Active Substance: RASBURICASE

REACTIONS (2)
  - Myelosuppression [Recovering/Resolving]
  - Drug resistance [Unknown]

NARRATIVE: CASE EVENT DATE: 20150223
